FAERS Safety Report 20103463 (Version 1)
Quarter: 2021Q4

REPORT INFORMATION
  Report Type: Spontaneous
  Country: ZA (occurrence: ZA)
  Receive Date: 20211123
  Receipt Date: 20211123
  Transmission Date: 20220303
  Serious: Yes (Other)
  Sender: FDA-Public Use
  Company Number: ZA-PFIZER INC-202101570220

PATIENT
  Age: 23 Year
  Sex: Male

DRUGS (1)
  1. XELJANZ [Suspect]
     Active Substance: TOFACITINIB CITRATE
     Dosage: 10 MG, 2X/DAY

REACTIONS (1)
  - Colitis ulcerative [Unknown]
